FAERS Safety Report 6628313-3 (Version None)
Quarter: 2010Q1

REPORT INFORMATION
  Report Type: 
  Country: None (occurrence: None)
  Receive Date: 20100311
  Receipt Date: 20100305
  Transmission Date: 20100710
  Serious: Yes (Hospitalization)
  Sender: FDA-Public Use
  Company Number: CN-ROCHE-683853

PATIENT
  Age: 56 Year
  Sex: Male

DRUGS (2)
  1. XELODA [Suspect]
     Indication: GASTRIC CANCER
     Route: 048
     Dates: start: 20091205, end: 20100131
  2. OXALIPLATIN [Concomitant]
     Indication: GASTRIC CANCER
     Dates: start: 20091205, end: 20100131

REACTIONS (2)
  - HAEMATEMESIS [None]
  - HAEMATOCHEZIA [None]
